FAERS Safety Report 10231814 (Version 2)
Quarter: 2014Q2

REPORT INFORMATION
  Report Type: Spontaneous
  Country: FI (occurrence: FI)
  Receive Date: 20140612
  Receipt Date: 20140612
  Transmission Date: 20141212
  Serious: Yes (Other)
  Sender: FDA-Public Use
  Company Number: FI-AMGEN-FINSP2014037258

PATIENT
  Age: 66 Year
  Sex: 0

DRUGS (4)
  1. PROLIA [Suspect]
     Indication: OSTEOPOROSIS
     Dosage: 60 MG, UNK
     Route: 058
     Dates: start: 20131030
  2. ATORVASTATIN ORION [Concomitant]
     Dosage: 10 MG, UNK
     Route: 048
  3. ATACAND [Concomitant]
     Dosage: 8 MG, UNK
     Route: 048
  4. PRIMASPAN [Concomitant]
     Dosage: 100 MG, UNK
     Route: 048

REACTIONS (5)
  - Tooth disorder [Unknown]
  - Nodule [Unknown]
  - Pulpitis dental [Unknown]
  - Mass [Unknown]
  - Rash [Unknown]
